FAERS Safety Report 23181355 (Version 1)
Quarter: 2023Q4

REPORT INFORMATION
  Report Type: Report from Study
  Country: US (occurrence: US)
  Receive Date: 20231114
  Receipt Date: 20231114
  Transmission Date: 20240110
  Serious: Yes (Other)
  Sender: FDA-Public Use
  Company Number: US-ABBVIE-5490109

PATIENT
  Sex: Female

DRUGS (2)
  1. HUMIRA [Suspect]
     Active Substance: ADALIMUMAB
     Indication: Hidradenitis
     Dosage: CITRATE FREE?FORM STRENGTH:40MG?LAST ADMIN DATE 2023
     Route: 058
     Dates: start: 20230221
  2. HUMIRA [Suspect]
     Active Substance: ADALIMUMAB
     Dosage: CITRATE FREE?FORM STRENGTH:40MG
     Route: 058
     Dates: start: 2023

REACTIONS (2)
  - Haemorrhagic ovarian cyst [Recovered/Resolved]
  - Ovarian cyst ruptured [Recovering/Resolving]

NARRATIVE: CASE EVENT DATE: 20230101
